FAERS Safety Report 15723042 (Version 3)
Quarter: 2019Q1

REPORT INFORMATION
  Report Type: Spontaneous
  Country: DE (occurrence: DE)
  Receive Date: 20181214
  Receipt Date: 20190319
  Transmission Date: 20190417
  Serious: Yes (Other)
  Sender: FDA-Public Use
  Company Number: DE-SAKK-2018SA332416AA

PATIENT
  Age: 30 Year
  Sex: Female
  Weight: 53 kg

DRUGS (9)
  1. CITALOPRAM [Concomitant]
     Active Substance: CITALOPRAM HYDROBROMIDE
     Dosage: 20 MG
  2. BISOPROLOL [Concomitant]
     Active Substance: BISOPROLOL
  3. DIMETHYL FUMARATE [Concomitant]
     Active Substance: DIMETHYL FUMARATE
     Dosage: UNK
     Dates: start: 2015
  4. CALCIUM + VIT D [Concomitant]
     Active Substance: CALCIUM\VITAMIN D
     Dosage: UNK UNK, QW
  5. VITAMIN D [Concomitant]
     Active Substance: CHOLECALCIFEROL
     Dosage: 8 NG/ML
     Dates: start: 201502
  6. LEMTRADA [Suspect]
     Active Substance: ALEMTUZUMAB
     Indication: RELAPSING-REMITTING MULTIPLE SCLEROSIS
     Dosage: UNK
     Route: 041
     Dates: start: 20150609, end: 20150613
  7. LEMTRADA [Suspect]
     Active Substance: ALEMTUZUMAB
     Dosage: UNK
     Route: 041
     Dates: start: 20160920, end: 20160922
  8. LEVOTHYROXINE. [Concomitant]
     Active Substance: LEVOTHYROXINE
     Dosage: UNK UNK, BID
  9. TYSABRI [Concomitant]
     Active Substance: NATALIZUMAB

REACTIONS (44)
  - Tri-iodothyronine free decreased [Recovered/Resolved]
  - Thyroxine free increased [Not Recovered/Not Resolved]
  - Anti-thyroid antibody positive [Unknown]
  - Infection [Unknown]
  - Haemoglobin decreased [Recovered/Resolved]
  - Mean cell haemoglobin decreased [Not Recovered/Not Resolved]
  - Alanine aminotransferase increased [Not Recovered/Not Resolved]
  - Protein total decreased [Recovered/Resolved]
  - C-reactive protein increased [Recovered/Resolved]
  - Hepatitis B surface antibody positive [Not Recovered/Not Resolved]
  - Alopecia [Unknown]
  - Pyrexia [Recovered/Resolved]
  - Eosinophil percentage increased [Not Recovered/Not Resolved]
  - Dyspnoea [Unknown]
  - Papillary thyroid cancer [Unknown]
  - Relapsing multiple sclerosis [Not Recovered/Not Resolved]
  - Blood thyroid stimulating hormone decreased [Not Recovered/Not Resolved]
  - Hepatic enzyme increased [Recovering/Resolving]
  - Gamma-glutamyltransferase increased [Not Recovered/Not Resolved]
  - Blood alkaline phosphatase increased [Recovered/Resolved]
  - Blood cholinesterase increased [Unknown]
  - Granulocyte percentage [Unknown]
  - Gastrointestinal infection [Recovered/Resolved]
  - Nausea [Recovered/Resolved]
  - Lipase increased [Unknown]
  - Protein total abnormal [Recovered/Resolved]
  - Anti-thyroid antibody positive [Not Recovered/Not Resolved]
  - Thyroid stimulating immunoglobulin [Unknown]
  - Sleep disorder [Unknown]
  - Papilloma viral infection [Unknown]
  - Diarrhoea [Recovered/Resolved]
  - Chills [Recovered/Resolved]
  - Scar [Unknown]
  - Alpha 2 globulin increased [Recovered/Resolved]
  - Basedow^s disease [Unknown]
  - Hyperthyroidism [Not Recovered/Not Resolved]
  - Transaminases increased [Recovered/Resolved]
  - Pyrexia [Recovered/Resolved]
  - Alpha 1 globulin increased [Unknown]
  - White blood cell count decreased [Recovered/Resolved]
  - Goitre [Unknown]
  - Epstein-Barr virus infection [Recovered/Resolved]
  - Epigastric discomfort [Unknown]
  - Blood creatinine decreased [Recovered/Resolved]

NARRATIVE: CASE EVENT DATE: 2016
